FAERS Safety Report 22827248 (Version 3)
Quarter: 2024Q4

REPORT INFORMATION
  Report Type: Report from Study
  Country: DO (occurrence: DO)
  Receive Date: 20230816
  Receipt Date: 20241022
  Transmission Date: 20250115
  Serious: Yes (Hospitalization, Other)
  Sender: NOVARTIS
  Company Number: DO-002147023-NVSC2023DO176614

PATIENT
  Sex: Female
  Weight: 81.6 kg

DRUGS (3)
  1. SECUKINUMAB [Suspect]
     Active Substance: SECUKINUMAB
     Indication: Ankylosing spondylitis
     Dosage: 150 MG, QMO
     Route: 058
     Dates: start: 202208
  2. SECUKINUMAB [Suspect]
     Active Substance: SECUKINUMAB
     Dosage: 150 MG, QMO
     Route: 058
     Dates: start: 2023
  3. SECUKINUMAB [Suspect]
     Active Substance: SECUKINUMAB
     Dosage: 300 MG
     Route: 065
     Dates: start: 202407

REACTIONS (8)
  - Intervertebral disc protrusion [Not Recovered/Not Resolved]
  - Bone pain [Not Recovered/Not Resolved]
  - Ankylosing spondylitis [Not Recovered/Not Resolved]
  - Gait disturbance [Unknown]
  - Arthralgia [Not Recovered/Not Resolved]
  - Spinal pain [Not Recovered/Not Resolved]
  - Feeling abnormal [Unknown]
  - Product availability issue [Unknown]

NARRATIVE: CASE EVENT DATE: 20220101
